FAERS Safety Report 5468644-6 (Version None)
Quarter: 2007Q3

REPORT INFORMATION
  Report Type: 
  Country: None (occurrence: None)
  Receive Date: 20070926
  Receipt Date: 20070925
  Transmission Date: 20080115
  Serious: Yes (Other)
  Sender: FDA-Public Use
  Company Number: A0683741A

PATIENT
  Age: 50 Year
  Sex: Female

DRUGS (3)
  1. ALLI [Suspect]
     Indication: WEIGHT LOSS DIET
     Route: 048
     Dates: end: 20070919
  2. TYLENOL (CAPLET) [Concomitant]
  3. DIOVAN [Concomitant]

REACTIONS (3)
  - CHOLELITHIASIS [None]
  - GALLBLADDER DISORDER [None]
  - HEPATIC ENZYME INCREASED [None]
